FAERS Safety Report 9334921 (Version 1)
Quarter: 2013Q2

REPORT INFORMATION
  Report Type: Spontaneous
  Country: US (occurrence: US)
  Receive Date: 20130606
  Receipt Date: 20130606
  Transmission Date: 20140414
  Serious: No
  Sender: FDA-Public Use
  Company Number: US-AMGEN-USASP2013018086

PATIENT
  Age: 72 Year
  Sex: Female
  Weight: 73.92 kg

DRUGS (6)
  1. PROLIA [Suspect]
     Indication: OSTEOPOROSIS POSTMENOPAUSAL
     Dosage: 60 MG, Q6MO
     Route: 058
     Dates: start: 20130131
  2. PROLIA [Suspect]
     Dosage: 60 MG, Q6MO
     Route: 058
     Dates: start: 20130131
  3. PROLIA [Suspect]
     Dosage: 60 MG, Q6MO
     Route: 058
     Dates: start: 20130218
  4. NEXIUM                             /01479302/ [Concomitant]
     Dosage: 40 MG, UNK
     Route: 048
  5. GABAPENTIN [Concomitant]
     Dosage: 100 MG, UNK
     Route: 048
  6. LISINOPRIL [Concomitant]
     Dosage: 40 MG, UNK
     Route: 048

REACTIONS (1)
  - Urinary tract infection [Recovered/Resolved]
